FAERS Safety Report 10177394 (Version 2)
Quarter: 2014Q2

REPORT INFORMATION
  Report Type: Spontaneous
  Country: US (occurrence: None)
  Receive Date: 20140416
  Receipt Date: 20140604
  Transmission Date: 20141212
  Serious: Yes (Hospitalization)
  Sender: FDA-Public Use
  Company Number: 163-POMAL-14011027

PATIENT
  Age: 64 Year
  Sex: Male

DRUGS (1)
  1. POMALYST (POMALIDOMIDE) (2 MILLIGRAM, CAPSULES) [Suspect]
     Indication: PLASMA CELL MYELOMA
     Dosage: 2 MG, 21 IN 28 D, PO?
     Route: 048
     Dates: start: 20130827, end: 20140106

REACTIONS (4)
  - Thrombosis [None]
  - Product physical issue [None]
  - Drug dispensing error [None]
  - Accidental exposure to product [None]
